FAERS Safety Report 8054654 (Version 4)
Quarter: 2013Q4

REPORT INFORMATION
  Report Type: Spontaneous
  Country: US (occurrence: US)
  Receive Date: 20110726
  Receipt Date: 20131016
  Transmission Date: 20140711
  Serious: Yes (Other)
  Sender: FDA-Public Use
  Company Number: US-ROCHE-772899

PATIENT
  Age: 35 Year
  Sex: Female
  Weight: 47.6 kg

DRUGS (3)
  1. ACCUTANE [Suspect]
     Indication: ACNE
     Route: 048
     Dates: start: 19990630, end: 19991015
  2. ACCUTANE [Suspect]
     Route: 048
  3. NAPROXEN [Concomitant]

REACTIONS (14)
  - Colitis ulcerative [Unknown]
  - Depression [Unknown]
  - Intestinal polyp [Unknown]
  - Inflammatory bowel disease [Unknown]
  - Suicidal ideation [Unknown]
  - Dry skin [Unknown]
  - Cheilitis [Unknown]
  - Fatigue [Unknown]
  - Xerosis [Unknown]
  - Dermatitis [Unknown]
  - Arthralgia [Unknown]
  - Myalgia [Unknown]
  - Lacrimation increased [Unknown]
  - Dry mouth [Unknown]
